FAERS Safety Report 13232724 (Version 26)
Quarter: 2019Q1

REPORT INFORMATION
  Report Type: Report from Study
  Country: US (occurrence: US)
  Receive Date: 20170214
  Receipt Date: 20190122
  Transmission Date: 20190417
  Serious: Yes (Hospitalization, Other)
  Sender: FDA-Public Use
  Company Number: US-ACTELION-A-US2017-149829

PATIENT
  Age: 62 Year
  Sex: Female
  Weight: 63.49 kg

DRUGS (5)
  1. OPSUMIT [Suspect]
     Active Substance: MACITENTAN
     Dosage: 10 MG, QD
     Route: 048
  2. SILDENAFIL. [Concomitant]
     Active Substance: SILDENAFIL
     Dosage: 20 MG, TID
     Route: 048
     Dates: start: 2016
  3. ORENITRAM [Concomitant]
     Active Substance: TREPROSTINIL
     Dosage: 1 MG, UNK
  4. SILDENAFIL. [Concomitant]
     Active Substance: SILDENAFIL
     Indication: PRODUCT USED FOR UNKNOWN INDICATION
     Dosage: 20 MG, BID
     Route: 048
     Dates: end: 20170426
  5. OPSUMIT [Suspect]
     Active Substance: MACITENTAN
     Indication: PULMONARY ARTERIAL HYPERTENSION
     Dosage: 10 MG, QD
     Route: 048

REACTIONS (51)
  - Skin neoplasm excision [Unknown]
  - Hypotension [Unknown]
  - Rash [Unknown]
  - Dyspnoea [Unknown]
  - Arthralgia [Unknown]
  - Somnolence [Unknown]
  - Rectal discharge [Not Recovered/Not Resolved]
  - Memory impairment [Unknown]
  - Confusional state [Unknown]
  - Dry skin [Unknown]
  - Eye contusion [Unknown]
  - Malaise [Unknown]
  - Toothache [Unknown]
  - Blood pressure decreased [Unknown]
  - Nausea [Unknown]
  - Asthenia [Unknown]
  - Localised oedema [Unknown]
  - Oxygen saturation decreased [Unknown]
  - Fungal infection [Unknown]
  - Pulmonary mass [Unknown]
  - Presyncope [Unknown]
  - Vomiting [Unknown]
  - Head injury [Unknown]
  - Dyspnoea exertional [Unknown]
  - Abdominal pain upper [Unknown]
  - Candida infection [Unknown]
  - Weight decreased [Unknown]
  - Diarrhoea [Unknown]
  - Oedema peripheral [Unknown]
  - Feeling abnormal [Unknown]
  - Rhinorrhoea [Unknown]
  - Nasal congestion [Unknown]
  - Lower respiratory tract infection [Unknown]
  - Crying [Unknown]
  - Abdominal discomfort [Unknown]
  - Squamous cell carcinoma [Unknown]
  - Hyperhidrosis [Unknown]
  - Hypoacusis [Unknown]
  - Nasopharyngitis [Unknown]
  - Loss of consciousness [Unknown]
  - Syncope [Unknown]
  - Cold sweat [Unknown]
  - Cough [Unknown]
  - Tremor [Unknown]
  - Urinary incontinence [Unknown]
  - Dizziness [Unknown]
  - Ear infection [Unknown]
  - Varicose vein [Unknown]
  - Dyspepsia [Unknown]
  - Respiratory disorder [Unknown]
  - Fatigue [Recovering/Resolving]

NARRATIVE: CASE EVENT DATE: 2016
